FAERS Safety Report 4805715-9 (Version None)
Quarter: 2005Q4

REPORT INFORMATION
  Report Type: 
  Country: None (occurrence: None)
  Receive Date: 20051021
  Receipt Date: 20051013
  Transmission Date: 20060501
  Serious: Yes (Disabling)
  Sender: FDA-Public Use
  Company Number: ZA-JNJFOC-20051000727

PATIENT
  Sex: Female
  Weight: 71 kg

DRUGS (5)
  1. REVELLEX [Suspect]
     Indication: RHEUMATOID ARTHRITIS
     Dosage: TOTAL OF 16 INFUSIONS
     Route: 042
  2. METHOTREXATE [Concomitant]
     Indication: RHEUMATOID ARTHRITIS
     Route: 048
  3. SALAZOPYRIN [Concomitant]
     Indication: RHEUMATOID ARTHRITIS
     Route: 048
  4. PREDNISONE TAB [Concomitant]
     Indication: RHEUMATOID ARTHRITIS
     Route: 048
  5. TRITACE [Concomitant]

REACTIONS (2)
  - NEPHROTIC SYNDROME [None]
  - TUBERCULOSIS [None]
